FAERS Safety Report 23261868 (Version 1)
Quarter: 2023Q4

REPORT INFORMATION
  Report Type: Spontaneous
  Country: CN (occurrence: CN)
  Receive Date: 20231205
  Receipt Date: 20231205
  Transmission Date: 20240109
  Serious: Yes (Hospitalization)
  Sender: FDA-Public Use
  Company Number: CN-GLAXOSMITHKLINE-CN2023APC166673

PATIENT

DRUGS (2)
  1. LAMOTRIGINE [Suspect]
     Active Substance: LAMOTRIGINE
     Indication: Mania
     Dosage: 25 MG, QD
     Route: 048
     Dates: start: 20231029, end: 20231113
  2. LAMOTRIGINE [Suspect]
     Active Substance: LAMOTRIGINE
     Indication: Depression

REACTIONS (11)
  - Drug eruption [Unknown]
  - Lip erythema [Unknown]
  - Oral mucosal erythema [Unknown]
  - Lip swelling [Unknown]
  - Mouth swelling [Unknown]
  - Lip erosion [Unknown]
  - Skin lesion [Unknown]
  - Erythema [Unknown]
  - Pyrexia [Unknown]
  - Conjunctival disorder [Unknown]
  - Vulval disorder [Unknown]

NARRATIVE: CASE EVENT DATE: 20231113
